FAERS Safety Report 15003354 (Version 1)
Quarter: 2018Q2

REPORT INFORMATION
  Report Type: Other
  Country: PL (occurrence: PL)
  Receive Date: 20180613
  Receipt Date: 20180613
  Transmission Date: 20180711
  Serious: Yes (Hospitalization, Other)
  Sender: FDA-Public Use
  Company Number: PL-MACLEODS PHARMACEUTICALS US LTD-MAC2018014252

PATIENT

DRUGS (5)
  1. ASPIRIN. [Concomitant]
     Active Substance: ASPIRIN
     Indication: PRODUCT USED FOR UNKNOWN INDICATION
     Dosage: UNK
     Route: 065
  2. PRASUGREL HYDROCHLORIDE [Suspect]
     Active Substance: PRASUGREL HYDROCHLORIDE
     Indication: ANTIPLATELET THERAPY
     Dosage: 60 MILLIGRAM, QD
     Route: 048
  3. TICAGRELOR. [Suspect]
     Active Substance: TICAGRELOR
     Indication: DRUG HYPERSENSITIVITY
     Dosage: UNK
     Route: 065
  4. PRASUGREL HYDROCHLORIDE [Suspect]
     Active Substance: PRASUGREL HYDROCHLORIDE
     Dosage: 10 MILLIGRAM, QD
     Route: 048
  5. CLOPIDOGREL [Suspect]
     Active Substance: CLOPIDOGREL BISULFATE
     Indication: DRUG HYPERSENSITIVITY
     Dosage: UNK
     Route: 065

REACTIONS (4)
  - Chest pain [Unknown]
  - Vascular stent thrombosis [Unknown]
  - Coronary artery occlusion [Recovering/Resolving]
  - Acute myocardial infarction [Unknown]
